FAERS Safety Report 14179901 (Version 1)
Quarter: 2017Q4

REPORT INFORMATION
  Report Type: Spontaneous
  Country: GB (occurrence: GB)
  Receive Date: 20171110
  Receipt Date: 20171110
  Transmission Date: 20180321
  Serious: Yes (Hospitalization, Disabling)
  Sender: FDA-Public Use
  Company Number: GB-TEVA-822071ACC

PATIENT
  Age: 72 Year
  Sex: Female

DRUGS (7)
  1. INDAPAMIDE. [Suspect]
     Active Substance: INDAPAMIDE
     Dosage: 1.5 MILLIGRAM DAILY;
     Route: 048
     Dates: start: 20130821
  2. LOSARTAN. [Concomitant]
     Active Substance: LOSARTAN
     Dosage: 50 MILLIGRAM DAILY;
     Route: 048
     Dates: start: 20141001
  3. FENBID [Concomitant]
     Active Substance: IBUPROFEN
     Route: 061
  4. LEVOTHYROXINE. [Concomitant]
     Active Substance: LEVOTHYROXINE
     Dosage: 100 MICROGRAM DAILY;
     Route: 048
  5. LITHIUM CARBONATE. [Suspect]
     Active Substance: LITHIUM CARBONATE
     Dosage: 400 MILLIGRAM DAILY;
     Route: 048
     Dates: start: 19951026
  6. DOXAZOSIN [Concomitant]
     Active Substance: DOXAZOSIN\DOXAZOSIN MESYLATE
     Dosage: 2 MILLIGRAM DAILY;
     Route: 048
  7. PROPRANOLOL [Concomitant]
     Active Substance: PROPRANOLOL HYDROCHLORIDE
     Dosage: 80 MILLIGRAM DAILY;
     Route: 048

REACTIONS (6)
  - Confusional state [Unknown]
  - Diarrhoea [Unknown]
  - Dehydration [Unknown]
  - Toxicity to various agents [Recovered/Resolved]
  - Renal impairment [Unknown]
  - Vomiting [Unknown]

NARRATIVE: CASE EVENT DATE: 201708
